FAERS Safety Report 6011482-6 (Version None)
Quarter: 2008Q4

REPORT INFORMATION
  Report Type: 
  Country: None (occurrence: None)
  Receive Date: 20081218
  Receipt Date: 20081211
  Transmission Date: 20090506
  Serious: Yes (Other)
  Sender: FDA-Public Use
  Company Number: US-TYCO HEALTHCARE/MALLINCKRODT-T200802104

PATIENT
  Sex: Female

DRUGS (5)
  1. THALLOUS CHLORIDE TL 201 [Suspect]
     Indication: CARDIAC STRESS TEST
     Dosage: UNK
     Dates: start: 20081210, end: 20081210
  2. MYOVIEW [Suspect]
     Indication: CARDIAC STRESS TEST
     Dosage: UNK
     Dates: start: 20081210, end: 20081210
  3. ULTRA-TECHNEKOW [Suspect]
     Indication: CARDIAC STRESS TEST
     Dosage: UNK
     Dates: start: 20081210, end: 20081210
  4. ASTELIN                            /00884002/ [Concomitant]
     Dosage: UNK
  5. OPTIVAR [Concomitant]
     Dosage: UNK

REACTIONS (5)
  - HYPERHIDROSIS [None]
  - HYPERSENSITIVITY [None]
  - PARAESTHESIA ORAL [None]
  - PHARYNGEAL OEDEMA [None]
  - THROAT TIGHTNESS [None]
